FAERS Safety Report 18265065 (Version 2)
Quarter: 2022Q4

REPORT INFORMATION
  Report Type: Spontaneous
  Country: US (occurrence: US)
  Receive Date: 20200914
  Receipt Date: 20221205
  Transmission Date: 20230113
  Serious: No
  Sender: FDA-Public Use
  Company Number: US-VIFOR (INTERNATIONAL) INC.-VIT-2020-09235

PATIENT
  Age: 51 Year
  Sex: Male

DRUGS (3)
  1. VELTASSA [Suspect]
     Active Substance: PATIROMER
     Indication: Hyperkalaemia
     Route: 048
     Dates: start: 20200410
  2. VELTASSA [Suspect]
     Active Substance: PATIROMER
     Dosage: DISSOLVE CONTENTS OF 1 PACKET (8.4 GRAMS) INTO 1/3 CUP OF WATER AND DRINK ON MONDAY, WEDNESDAY AND F
     Route: 048
  3. VELTASSA [Suspect]
     Active Substance: PATIROMER
     Dosage: DISSOLVE CONTENTS OF 2 PACKETS (16.8 GRAMS) INTO 1/3 CUP OF WATER AND DRINK TUESDAY, THURSDAY, SATUR
     Route: 048

REACTIONS (4)
  - Illness [Unknown]
  - Vomiting [Recovered/Resolved]
  - Inappropriate schedule of product administration [Unknown]
  - Product dose omission issue [Unknown]

NARRATIVE: CASE EVENT DATE: 20200410
